FAERS Safety Report 24029069 (Version 1)
Quarter: 2024Q2

REPORT INFORMATION
  Report Type: Spontaneous
  Country: US (occurrence: None)
  Receive Date: 20240627
  Receipt Date: 20240627
  Transmission Date: 20240715
  Serious: Yes (Other)
  Sender: FDA-Public Use
  Company Number: None

PATIENT
  Age: 67 Year
  Sex: Female
  Weight: 49.95 kg

DRUGS (1)
  1. EVENITY [Suspect]
     Active Substance: ROMOSOZUMAB-AQQG
     Indication: Osteoporosis
     Dosage: OTHER FREQUENCY : EVERY 30 DAYS;?
     Route: 030
     Dates: start: 20230602, end: 20240510

REACTIONS (3)
  - Panic attack [None]
  - Anxiety [None]
  - Brain fog [None]

NARRATIVE: CASE EVENT DATE: 20240514
